FAERS Safety Report 7083872-4 (Version None)
Quarter: 2010Q4

REPORT INFORMATION
  Report Type: 
  Country: None (occurrence: None)
  Receive Date: 20101104
  Receipt Date: 20101101
  Transmission Date: 20110411
  Serious: Yes (Hospitalization)
  Sender: FDA-Public Use
  Company Number: US-ROXANE LABORATORIES, INC.-2010-RO-01442RO

PATIENT
  Age: 46 Year
  Sex: Female

DRUGS (7)
  1. ZOLPIDEM [Suspect]
  2. CITALOPRAM HYDROBROMIDE [Suspect]
     Dosage: 10 MG
  3. TRIMETHOPRIM + SULFAMETHOXAZOLE [Suspect]
     Indication: URINARY TRACT INFECTION
  4. OLANZAPINE [Suspect]
     Dosage: 5 MG
  5. METAXALONE [Suspect]
     Dosage: 1600 MG
  6. INSULIN GLARGINE [Suspect]
     Indication: TYPE 1 DIABETES MELLITUS
  7. INSULIN LISPRO [Suspect]
     Indication: TYPE 1 DIABETES MELLITUS

REACTIONS (1)
  - SEROTONIN SYNDROME [None]
